FAERS Safety Report 5016914-8 (Version None)
Quarter: 2006Q2

REPORT INFORMATION
  Report Type: 
  Country: None (occurrence: None)
  Receive Date: 20060526
  Receipt Date: 20060511
  Transmission Date: 20061013
  Serious: Yes (Other)
  Sender: FDA-Public Use
  Company Number: 29248

PATIENT
  Age: 46 Year
  Sex: Female

DRUGS (3)
  1. TAMBOCOR [Suspect]
     Indication: ARRHYTHMIA
     Dosage: 100 MG (100 MG, 1 IN 1 DAY(S)) ORAL
     Route: 048
     Dates: start: 20050526, end: 20050705
  2. ACETOSAL [Concomitant]
  3. METOPROLOL [Concomitant]

REACTIONS (3)
  - APHASIA [None]
  - DYSGRAPHIA [None]
  - MEMORY IMPAIRMENT [None]
